FAERS Safety Report 7933180-1 (Version None)
Quarter: 2011Q4

REPORT INFORMATION
  Report Type: 
  Country: None (occurrence: None)
  Receive Date: 20111122
  Receipt Date: 20111115
  Transmission Date: 20120403
  Serious: Yes (Life-Threatening, Other)
  Sender: FDA-Public Use
  Company Number: FR-JNJFOC-20111012189

PATIENT
  Age: 59 Year
  Sex: Male

DRUGS (14)
  1. REMICADE [Suspect]
     Route: 042
     Dates: end: 20090907
  2. REMICADE [Suspect]
     Route: 042
     Dates: start: 20080830
  3. REMICADE [Suspect]
     Route: 042
     Dates: start: 20080211
  4. REMICADE [Suspect]
     Route: 042
     Dates: start: 20100305, end: 20110926
  5. REMICADE [Suspect]
     Route: 042
     Dates: start: 20080830
  6. REMICADE [Suspect]
     Route: 042
     Dates: start: 20080211
  7. REMICADE [Suspect]
     Indication: PSORIATIC ARTHROPATHY
     Route: 042
     Dates: start: 20080505
  8. REMICADE [Suspect]
     Route: 042
     Dates: start: 20080630
  9. REMICADE [Suspect]
     Route: 042
     Dates: start: 20080101
  10. REMICADE [Suspect]
     Route: 042
     Dates: start: 20080630
  11. REMICADE [Suspect]
     Route: 042
     Dates: start: 20100305, end: 20110926
  12. REMICADE [Suspect]
     Indication: PSORIASIS
     Route: 042
     Dates: end: 20090907
  13. REMICADE [Suspect]
     Route: 042
     Dates: start: 20080101
  14. REMICADE [Suspect]
     Route: 042
     Dates: start: 20080505

REACTIONS (1)
  - OESOPHAGEAL SQUAMOUS CELL CARCINOMA [None]
